FAERS Safety Report 14340346 (Version 2)
Quarter: 2018Q2

REPORT INFORMATION
  Report Type: Report from Study
  Country: GB (occurrence: GB)
  Receive Date: 20180101
  Receipt Date: 20180421
  Transmission Date: 20180711
  Serious: Yes (Death, Other)
  Sender: FDA-Public Use
  Company Number: GB-ROCHE-1685566

PATIENT
  Age: 78 Year
  Sex: Male

DRUGS (3)
  1. ESBRIET [Suspect]
     Active Substance: PIRFENIDONE
     Route: 048
  2. ESBRIET [Suspect]
     Active Substance: PIRFENIDONE
     Indication: IDIOPATHIC PULMONARY FIBROSIS
     Route: 048
     Dates: start: 20151215
  3. ESBRIET [Suspect]
     Active Substance: PIRFENIDONE
     Route: 048
     Dates: end: 201602

REACTIONS (15)
  - Nausea [Recovered/Resolved]
  - Middle insomnia [Unknown]
  - Malaise [Recovering/Resolving]
  - Dyspnoea [Not Recovered/Not Resolved]
  - Death [Fatal]
  - Heart rate irregular [Unknown]
  - Anxiety [Unknown]
  - Chest pain [Unknown]
  - Panic attack [Recovered/Resolved]
  - Increased viscosity of bronchial secretion [Unknown]
  - Drug ineffective [Unknown]
  - Pulmonary function test decreased [Unknown]
  - Feeling abnormal [Unknown]
  - Fatigue [Unknown]
  - Back pain [Unknown]

NARRATIVE: CASE EVENT DATE: 20170401
